FAERS Safety Report 20476412 (Version 1)
Quarter: 2022Q1

REPORT INFORMATION
  Report Type: Spontaneous
  Country: FR (occurrence: FR)
  Receive Date: 20220215
  Receipt Date: 20220215
  Transmission Date: 20220424
  Serious: Yes (Other)
  Sender: FDA-Public Use
  Company Number: FR-NOVARTISPH-NVSC2022FR034223

PATIENT
  Age: 62 Year
  Sex: Female

DRUGS (2)
  1. HYDROCHLOROTHIAZIDE\VALSARTAN [Suspect]
     Active Substance: HYDROCHLOROTHIAZIDE\VALSARTAN
     Indication: Hypertension
     Dosage: 1 DOSAGE FORM, QD
     Route: 065
     Dates: start: 1990
  2. PROPRANOLOL [Suspect]
     Active Substance: PROPRANOLOL HYDROCHLORIDE
     Indication: Migraine
     Dosage: 160 MG, QD
     Route: 065
     Dates: start: 199201

REACTIONS (13)
  - Haematemesis [Unknown]
  - Paralysis [Unknown]
  - Liver injury [Unknown]
  - Presyncope [Unknown]
  - Heat exhaustion [Unknown]
  - Dyskinesia [Unknown]
  - Blood test abnormal [Unknown]
  - Migraine [Unknown]
  - Tendon rupture [Unknown]
  - Paraesthesia [Unknown]
  - Dyspnoea [Unknown]
  - Tinnitus [Unknown]
  - Sleep disorder [Unknown]

NARRATIVE: CASE EVENT DATE: 20220202
